FAERS Safety Report 7191901-2 (Version None)
Quarter: 2010Q4

REPORT INFORMATION
  Report Type: 
  Country: None (occurrence: None)
  Receive Date: 20101223
  Receipt Date: 20101213
  Transmission Date: 20110411
  Serious: Yes (Hospitalization)
  Sender: FDA-Public Use
  Company Number: PHHY2010BR57661

PATIENT
  Sex: Female

DRUGS (1)
  1. FORASEQ [Suspect]

REACTIONS (5)
  - CHEST PAIN [None]
  - DYSPNOEA [None]
  - HEADACHE [None]
  - TREATMENT NONCOMPLIANCE [None]
  - WHEEZING [None]
